FAERS Safety Report 9461550 (Version 1)
Quarter: 2013Q3

REPORT INFORMATION
  Report Type: Spontaneous
  Country: US (occurrence: US)
  Receive Date: 20130816
  Receipt Date: 20130816
  Transmission Date: 20140515
  Serious: Yes (Hospitalization, Other)
  Sender: FDA-Public Use
  Company Number: US-BRISTOL-MYERS SQUIBB COMPANY-19186865

PATIENT
  Age: 58 Year
  Sex: Male
  Weight: 132 kg

DRUGS (21)
  1. COUMADIN TABS 2 MG [Suspect]
     Indication: PULMONARY EMBOLISM
     Dosage: ALSO TAKEN IN 1 MG,10 MG DOSES; 14-JUN-2013.
  2. ACETYLSALICYLIC ACID [Suspect]
     Indication: PROPHYLAXIS
  3. TREPROSTINIL [Concomitant]
     Indication: PULMONARY ARTERIAL HYPERTENSION
     Dosage: 13JUN13-ONG?19JUN13-ONG?INTRP ON 7MAY13?20 MG(10 MG, 2 IN 1 DAY)
     Route: 048
     Dates: start: 20101018
  4. PRILOSEC [Concomitant]
     Indication: GASTROOESOPHAGEAL REFLUX DISEASE
     Route: 048
     Dates: start: 20110204
  5. TADALAFIL [Concomitant]
     Indication: PULMONARY ARTERIAL HYPERTENSION
     Dates: start: 20110926
  6. BUMEX [Concomitant]
     Indication: PULMONARY ARTERIAL HYPERTENSION
     Dates: start: 20121218
  7. BUMEX [Concomitant]
     Indication: FLUID RETENTION
     Dates: start: 20121218
  8. ALDACTONE [Concomitant]
     Indication: FLUID RETENTION
  9. ALDACTONE [Concomitant]
     Indication: PULMONARY ARTERIAL HYPERTENSION
  10. ZAROXOLYN [Concomitant]
     Indication: FLUID RETENTION
     Dates: start: 20120508
  11. ZAROXOLYN [Concomitant]
     Indication: PULMONARY ARTERIAL HYPERTENSION
     Dates: start: 20120508
  12. NOVOLOG [Concomitant]
     Indication: DIABETES MELLITUS
     Dosage: 1DF:100UNITS/ML
     Dates: start: 20120329
  13. LETAIRIS [Concomitant]
     Indication: PULMONARY ARTERIAL HYPERTENSION
     Dates: start: 20121023
  14. LANTUS [Concomitant]
     Indication: DIABETES MELLITUS
     Dosage: 1DF:100UNIT/ML
     Dates: start: 20120329
  15. IRON [Concomitant]
     Indication: ANAEMIA
     Dates: start: 20120509
  16. CYMBALTA [Concomitant]
     Indication: PAIN IN EXTREMITY
     Dates: start: 20111013
  17. CYMBALTA [Concomitant]
     Indication: NEUROPATHY PERIPHERAL
     Dates: start: 20111013
  18. PRAVACHOL [Concomitant]
     Indication: HYPERCHOLESTEROLAEMIA
  19. NEURONTIN [Concomitant]
     Indication: NEUROPATHY PERIPHERAL
     Dates: start: 20111102
  20. ROXICODONE [Concomitant]
     Indication: NEUROPATHY PERIPHERAL
     Dates: start: 20111023
  21. ROXICODONE [Concomitant]
     Indication: PAIN IN EXTREMITY
     Dates: start: 20111023

REACTIONS (9)
  - Renal failure acute [Recovered/Resolved]
  - Gastrointestinal haemorrhage [Recovered/Resolved]
  - Cardiac failure congestive [Recovered/Resolved]
  - Dyspnoea [Unknown]
  - Weight increased [Unknown]
  - Pneumonia [Unknown]
  - Dehydration [Unknown]
  - Back pain [Unknown]
  - Nausea [Unknown]
